FAERS Safety Report 18550885 (Version 3)
Quarter: 2021Q3

REPORT INFORMATION
  Report Type: Report from Study
  Country: JP (occurrence: JP)
  Receive Date: 20201126
  Receipt Date: 20210723
  Transmission Date: 20211014
  Serious: Yes (Hospitalization, Disabling, Other)
  Sender: FDA-Public Use
  Company Number: JP-JNJFOC-A-CH2019-189353

PATIENT
  Age: 55 Year
  Sex: Male
  Weight: 67 kg

DRUGS (20)
  1. UPTRAVI [Suspect]
     Active Substance: SELEXIPAG
     Dosage: 0.4 MG, BID
     Route: 048
     Dates: start: 20180317, end: 20180510
  2. DIGOSIN [Concomitant]
     Active Substance: DIGOXIN
     Dosage: 0.125 MG, QD
  3. DIART [AZOSEMIDE] [Concomitant]
     Active Substance: AZOSEMIDE
     Dosage: 60 MG, QD
     Dates: start: 20181116, end: 20191018
  4. UPTRAVI [Suspect]
     Active Substance: SELEXIPAG
     Indication: PULMONARY ARTERIAL HYPERTENSION
     Dosage: 0.8 MG, BID
     Route: 048
     Dates: start: 20180622, end: 20181115
  5. UPTRAVI [Suspect]
     Active Substance: SELEXIPAG
     Dosage: 0.6 MG, BID
     Route: 048
     Dates: start: 20181116
  6. LIMAPROST ALFADEX [Concomitant]
     Active Substance: LIMAPROST
     Dosage: 15 MCG, QD
     Dates: end: 20180316
  7. FLUITRAN [Concomitant]
     Dosage: 1 MG, QD
     Dates: start: 20181019
  8. DIART [AZOSEMIDE] [Concomitant]
     Active Substance: AZOSEMIDE
     Dates: start: 20191019
  9. PLAVIX [Concomitant]
     Active Substance: CLOPIDOGREL BISULFATE
     Dosage: 75 MG, QD
     Dates: end: 20180413
  10. FLUITRAN [Concomitant]
     Indication: CHRONIC KIDNEY DISEASE
     Dosage: 1 MG, QD
     Dates: end: 20180727
  11. BIOFERMIN [Concomitant]
     Active Substance: DIETARY SUPPLEMENT\PROBIOTICS
     Indication: DIARRHOEA
     Dosage: 36 MG, QD
  12. ADCIRCA [Concomitant]
     Active Substance: TADALAFIL
     Indication: PULMONARY ARTERIAL HYPERTENSION
     Dosage: 20 MG, QD
     Dates: start: 201605
  13. DIART [AZOSEMIDE] [Concomitant]
     Active Substance: AZOSEMIDE
     Dosage: 30 MG, QD
     Dates: end: 20181116
  14. UPTRAVI [Suspect]
     Active Substance: SELEXIPAG
     Dosage: 0.2 MG, BID
     Route: 048
     Dates: start: 20180216, end: 20180316
  15. TRACLEER [Suspect]
     Active Substance: BOSENTAN
     Indication: PULMONARY ARTERIAL HYPERTENSION
     Dosage: 250 MG, QD
     Route: 048
  16. CANDESARTAN. [Concomitant]
     Active Substance: CANDESARTAN
     Dosage: 2 MG, QD
     Dates: end: 20181221
  17. LOXOPROFEN [Concomitant]
     Active Substance: LOXOPROFEN
     Indication: HEADACHE
     Dosage: 60 MG, QD
  18. COCARL [Concomitant]
     Active Substance: ACETAMINOPHEN
     Indication: HEADACHE
     Dosage: 400 MG, QD
     Dates: start: 20180414
  19. TRACLEER [Suspect]
     Active Substance: BOSENTAN
     Route: 048
     Dates: start: 2009
  20. UPTRAVI [Suspect]
     Active Substance: SELEXIPAG
     Dosage: 0.6 MG, BID
     Route: 048
     Dates: start: 20180511, end: 20180621

REACTIONS (27)
  - Oxygen saturation decreased [Unknown]
  - Condition aggravated [Unknown]
  - Abnormal precordial movement [Unknown]
  - Atrioventricular block [Unknown]
  - Pulmonary arterial hypertension [Unknown]
  - Electrocardiogram ST-T segment abnormal [Unknown]
  - Tricuspid valve incompetence [Unknown]
  - Platelet count decreased [Recovering/Resolving]
  - Cyanosis central [Unknown]
  - Cardiothoracic ratio increased [Unknown]
  - Right ventricular failure [Unknown]
  - Pulmonary artery dilatation [Unknown]
  - Right ventricular dilatation [Unknown]
  - Pleural effusion [Recovered/Resolved]
  - Haemoptysis [Recovered/Resolved]
  - Jugular vein distension [Unknown]
  - Heart sounds abnormal [Unknown]
  - Polycythaemia [Unknown]
  - Syncope [Unknown]
  - Oedema [Recovered/Resolved]
  - Iron deficiency [Recovered/Resolved]
  - Oedema peripheral [Unknown]
  - Clubbing [Unknown]
  - Cardiac murmur [Unknown]
  - Electrocardiogram S1-S2-S3 pattern [Unknown]
  - Right atrial dilatation [Unknown]
  - Pericardial effusion [Unknown]

NARRATIVE: CASE EVENT DATE: 201803
